FAERS Safety Report 11354599 (Version 1)
Quarter: 2015Q3

REPORT INFORMATION
  Report Type: Spontaneous
  Country: US (occurrence: US)
  Receive Date: 20150807
  Receipt Date: 20150807
  Transmission Date: 20151125
  Serious: No
  Sender: FDA-Public Use
  Company Number: US-JNJFOC-20150413029

PATIENT
  Age: 75 Year
  Sex: Female
  Weight: 55.79 kg

DRUGS (4)
  1. CALCIUM W/VITAMINS NOS [Concomitant]
     Indication: NUTRITIONAL SUPPLEMENTATION
     Route: 065
  2. WOMENS ROGAINE UNSCENTED [Suspect]
     Active Substance: MINOXIDIL
     Indication: ALOPECIA
     Dosage: 1/2 CAPFUL
     Route: 061
  3. WOMENS ROGAINE UNSCENTED [Suspect]
     Active Substance: MINOXIDIL
     Route: 061
  4. EYE DROPS [Concomitant]
     Active Substance: TETRAHYDROZOLINE HYDROCHLORIDE
     Indication: GLAUCOMA
     Route: 065

REACTIONS (3)
  - Wrong technique in product usage process [Unknown]
  - Erythema [Recovering/Resolving]
  - Product formulation issue [Unknown]

NARRATIVE: CASE EVENT DATE: 20150403
